FAERS Safety Report 11676434 (Version 1)
Quarter: 2015Q4

REPORT INFORMATION
  Report Type: Spontaneous
  Country: US (occurrence: US)
  Receive Date: 20151027
  Receipt Date: 20151027
  Transmission Date: 20160304
  Serious: No
  Sender: FDA-Public Use
  Company Number: US-ELI_LILLY_AND_COMPANY-US201006000849

PATIENT
  Age: 76 Year
  Sex: Female

DRUGS (4)
  1. LESCOL [Concomitant]
     Active Substance: FLUVASTATIN SODIUM
     Indication: BLOOD CHOLESTEROL INCREASED
     Dosage: 20 MG, DAILY (1/D)
  2. LESCOL [Concomitant]
     Active Substance: FLUVASTATIN SODIUM
     Dosage: 40 MG, DAILY (1/D)
  3. FORTEO [Suspect]
     Active Substance: TERIPARATIDE
     Dosage: 20 UG, DAILY (1/D)
  4. FORTEO [Suspect]
     Active Substance: TERIPARATIDE
     Indication: OSTEOPOROSIS
     Dosage: 20 UG, DAILY (1/D)
     Route: 065
     Dates: start: 200905

REACTIONS (12)
  - Asthenia [Recovered/Resolved]
  - Heart rate abnormal [Unknown]
  - Dizziness [Recovered/Resolved]
  - Pain [Unknown]
  - Vitamin D decreased [Recovered/Resolved]
  - Muscle spasms [Not Recovered/Not Resolved]
  - Blood parathyroid hormone increased [Recovered/Resolved]
  - Lipoatrophy [Unknown]
  - Paraesthesia [Unknown]
  - Gait disturbance [Unknown]
  - Varicose vein [Unknown]
  - Fatigue [Recovered/Resolved]

NARRATIVE: CASE EVENT DATE: 201008
